FAERS Safety Report 4285933-1 (Version None)
Quarter: 2004Q1

REPORT INFORMATION
  Report Type: 
  Country: None (occurrence: None)
  Receive Date: 20040205
  Receipt Date: 20040202
  Transmission Date: 20041129
  Serious: Yes (Other)
  Sender: FDA-Public Use
  Company Number: DE-GLAXOSMITHKLINE-B0321976A

PATIENT
  Age: 66 Year
  Sex: Male

DRUGS (1)
  1. CARVEDILOL [Suspect]
     Dosage: 12.5MG FOUR TIMES PER DAY
     Route: 048
     Dates: start: 20030521, end: 20030526

REACTIONS (1)
  - RESPIRATORY FAILURE [None]
